FAERS Safety Report 5596114-3 (Version None)
Quarter: 2008Q1

REPORT INFORMATION
  Report Type: 
  Country: None (occurrence: None)
  Receive Date: 20080118
  Receipt Date: 20080116
  Transmission Date: 20080703
  Serious: Yes (Hospitalization, Other)
  Sender: FDA-Public Use
  Company Number: BR-BOEHRINGER INGELHEIM PHARMACEUTICALS, INC.-2007-BP-26286BP

PATIENT
  Sex: Female
  Weight: 3 kg

DRUGS (6)
  1. VIRAMUNE [Suspect]
     Indication: VERTICAL INFECTION TRANSMISSION
     Route: 048
     Dates: start: 20061230
  2. ZIDOVUDINE [Suspect]
     Indication: VERTICAL INFECTION TRANSMISSION
     Route: 048
     Dates: start: 20061230
  3. VITAMIN K [Concomitant]
     Indication: PROPHYLAXIS
     Route: 030
     Dates: start: 20061230, end: 20061230
  4. 70% ALCOHOL [Concomitant]
     Indication: UMBILICAL SEPSIS
     Route: 061
     Dates: start: 20061230
  5. SILVER NITRATE [Concomitant]
     Indication: PROPHYLAXIS
     Route: 061
     Dates: start: 20061230, end: 20061230
  6. ZIDOVUDINE [Concomitant]
     Indication: PROPHYLAXIS AGAINST HIV INFECTION
     Route: 048
     Dates: start: 20061230, end: 20061230

REACTIONS (1)
  - ABO INCOMPATIBILITY [None]
